FAERS Safety Report 6674340-X (Version None)
Quarter: 2010Q2

REPORT INFORMATION
  Report Type: 
  Country: None (occurrence: None)
  Receive Date: 20100409
  Receipt Date: 20100331
  Transmission Date: 20101027
  Serious: Yes (Other)
  Sender: FDA-Public Use
  Company Number: US-ASTRAZENECA-2009SE27617

PATIENT
  Age: 23827 Day
  Sex: Female
  Weight: 57.7 kg

DRUGS (13)
  1. TOPROL-XL [Suspect]
     Indication: HYPERTENSION
     Dosage: 100 MG
     Route: 048
  2. TOPROL-XL [Suspect]
     Route: 048
  3. CRESTOR [Suspect]
     Route: 048
     Dates: start: 20071001
  4. CRESTOR [Suspect]
     Route: 048
     Dates: start: 20091001
  5. CRESTOR [Suspect]
     Dosage: ONE TABLET IN MORNING AND ONE AT NIGHT
     Route: 048
  6. CRESTOR [Suspect]
     Route: 048
  7. LANTUS [Concomitant]
     Indication: DIABETES MELLITUS
     Route: 065
  8. HUMALOG [Concomitant]
     Indication: DIABETES MELLITUS
     Route: 065
  9. VALIUM [Concomitant]
     Indication: ANXIETY
     Dosage: AS REQUIRED
  10. ALBUTEROL [Concomitant]
     Indication: ASTHMA
  11. NASONEX [Concomitant]
     Indication: MULTIPLE ALLERGIES
  12. NASONEX [Concomitant]
     Indication: ASTHMA
  13. AZMACORT [Concomitant]
     Indication: ASTHMA

REACTIONS (13)
  - AMNESIA [None]
  - ARTERIAL THROMBOSIS [None]
  - ASTHENIA [None]
  - CHEST PAIN [None]
  - CONVULSION [None]
  - DYSPNOEA [None]
  - FEELING ABNORMAL [None]
  - HEADACHE [None]
  - INCORRECT DOSE ADMINISTERED [None]
  - MEDICATION ERROR [None]
  - NAUSEA [None]
  - OVERDOSE [None]
  - PHOTOPSIA [None]
